FAERS Safety Report 8388329-6 (Version None)
Quarter: 2012Q2

REPORT INFORMATION
  Report Type: 
  Country: None (occurrence: None)
  Receive Date: 20120525
  Receipt Date: 20120516
  Transmission Date: 20120825
  Serious: Yes (Hospitalization)
  Sender: FDA-Public Use
  Company Number: FR-ASTRAZENECA-2012SE31487

PATIENT
  Age: 60 Year
  Sex: Female

DRUGS (2)
  1. QUETIAPINE FUMARATE [Suspect]
     Indication: DEPRESSION
     Route: 048
     Dates: start: 20120125, end: 20120127
  2. QUETIAPINE FUMARATE [Suspect]
     Route: 048
     Dates: start: 20120128

REACTIONS (2)
  - VENOUS THROMBOSIS [None]
  - PULMONARY EMBOLISM [None]
